FAERS Safety Report 18670017 (Version 2)
Quarter: 2021Q3

REPORT INFORMATION
  Report Type: Spontaneous
  Country: JP (occurrence: JP)
  Receive Date: 20201228
  Receipt Date: 20210916
  Transmission Date: 20211014
  Serious: Yes (Other)
  Sender: FDA-Public Use
  Company Number: JP-ELI_LILLY_AND_COMPANY-JP202012012379

PATIENT
  Age: 50 Year
  Sex: Male

DRUGS (1)
  1. NECITUMUMAB [Suspect]
     Active Substance: NECITUMUMAB
     Indication: LUNG NEOPLASM MALIGNANT
     Dosage: 800 MG, UNKNOWN
     Route: 041

REACTIONS (1)
  - Thrombosis [Not Recovered/Not Resolved]
